FAERS Safety Report 9569805 (Version 1)
Quarter: 2013Q3

REPORT INFORMATION
  Report Type: Spontaneous
  Country: US (occurrence: US)
  Receive Date: 20130930
  Receipt Date: 20130930
  Transmission Date: 20140515
  Serious: No
  Sender: FDA-Public Use
  Company Number: US-AMGEN-USASP2013066197

PATIENT
  Age: 50 Year
  Sex: Male

DRUGS (1)
  1. ENBREL [Suspect]
     Indication: FIBROMYALGIA
     Dosage: 50 MG, QWK
     Route: 065
     Dates: start: 20130718, end: 20130905

REACTIONS (1)
  - Drug ineffective [Not Recovered/Not Resolved]
